FAERS Safety Report 24669928 (Version 1)
Quarter: 2024Q4

REPORT INFORMATION
  Report Type: Spontaneous
  Country: IT (occurrence: IT)
  Receive Date: 20241127
  Receipt Date: 20241127
  Transmission Date: 20250115
  Serious: Yes (Hospitalization)
  Sender: DAIICHI
  Company Number: IT-DSJP-DS-2024-109575-IT

PATIENT
  Age: 70 Year
  Sex: Male

DRUGS (2)
  1. TRASTUZUMAB DERUXTECAN [Suspect]
     Active Substance: TRASTUZUMAB DERUXTECAN
     Indication: Oesophageal carcinoma
     Dosage: UNK
     Route: 065
     Dates: start: 20241015
  2. TRASTUZUMAB DERUXTECAN [Suspect]
     Active Substance: TRASTUZUMAB DERUXTECAN
     Indication: Oesophageal cancer metastatic

REACTIONS (3)
  - Pneumonia aspiration [Unknown]
  - Nausea [Unknown]
  - Vomiting [Unknown]
